FAERS Safety Report 8571522-7 (Version None)
Quarter: 2012Q3

REPORT INFORMATION
  Report Type: 
  Country: None (occurrence: None)
  Receive Date: 20120806
  Receipt Date: 20120730
  Transmission Date: 20120928
  Serious: Yes (Hospitalization)
  Sender: FDA-Public Use
  Company Number: PHHY2012FR066789

PATIENT
  Sex: Female

DRUGS (1)
  1. ONBREZ [Suspect]
     Dosage: 150 UG, QD

REACTIONS (1)
  - ANGIOEDEMA [None]
